FAERS Safety Report 5591964-1 (Version None)
Quarter: 2008Q1

REPORT INFORMATION
  Report Type: 
  Country: None (occurrence: None)
  Receive Date: 20080115
  Receipt Date: 20080107
  Transmission Date: 20080703
  Serious: Yes (Disabling)
  Sender: FDA-Public Use
  Company Number: US-ELI_LILLY_AND_COMPANY-US200801001569

PATIENT
  Sex: Male

DRUGS (2)
  1. HUMALOG [Suspect]
  2. HUMULIN N [Suspect]

REACTIONS (3)
  - FALL [None]
  - NASOPHARYNGITIS [None]
  - SPINAL CORD INJURY [None]
